FAERS Safety Report 5409058-4 (Version None)
Quarter: 2007Q3

REPORT INFORMATION
  Report Type: 
  Country: None (occurrence: None)
  Receive Date: 20070806
  Receipt Date: 20070724
  Transmission Date: 20080115
  Serious: Yes (Other)
  Sender: FDA-Public Use
  Company Number: 100#08#2007-02875

PATIENT
  Age: 50 Year
  Sex: Male

DRUGS (8)
  1. CIPROFLOXACIN [Suspect]
     Indication: UROSEPSIS
     Dosage: ORAL
     Route: 048
  2. AMPICILLIN (AMPICILLIN) (AMPICILLIN) [Concomitant]
  3. GENTAMICIN [Concomitant]
  4. QUINAPRILL (QUINAPRIL) (QUINAPRIL) [Concomitant]
  5. METHYLODOPA (METHYLDOPA) (METHYLDOPA) [Concomitant]
  6. FUROSEMIDE (FUROSEMIDE) (FUROSEMIDE) [Concomitant]
  7. METOLAZONE (METOLAZONE) (METOLAZONE) [Concomitant]
  8. DILTIAZEM 9DILTIAZEM) (DILTIAZEM) [Concomitant]

REACTIONS (6)
  - CONDITION AGGRAVATED [None]
  - CUTANEOUS VASCULITIS [None]
  - HYPERTENSION [None]
  - RENAL VASCULITIS [None]
  - SCAR [None]
  - ULCER [None]
